FAERS Safety Report 4617990-4 (Version None)
Quarter: 2005Q1

REPORT INFORMATION
  Report Type: 
  Country: None (occurrence: None)
  Receive Date: 20050322
  Receipt Date: 20050315
  Transmission Date: 20050727
  Serious: Yes (Hospitalization)
  Sender: FDA-Public Use
  Company Number: 2005SE00364

PATIENT
  Age: 34 Year
  Sex: Female
  Weight: 78.7 kg

DRUGS (2)
  1. SEROQUEL [Suspect]
     Indication: SCHIZOPHRENIA
     Dosage: 300 MG DAILY PO
     Route: 048
     Dates: start: 20041116
  2. SEROQUEL [Suspect]
     Indication: SCHIZOPHRENIA
     Dosage: 600 MG DAILY PO
     Route: 048

REACTIONS (6)
  - ANXIETY [None]
  - AUTISM [None]
  - DELUSION [None]
  - HYPERKINESIA [None]
  - HYPOCHONDRIASIS [None]
  - SCHIZOPHRENIA [None]
